FAERS Safety Report 11502435 (Version 2)
Quarter: 2016Q3

REPORT INFORMATION
  Report Type: Spontaneous
  Country: US (occurrence: US)
  Receive Date: 20150914
  Receipt Date: 20160915
  Transmission Date: 20161109
  Serious: Yes (Other)
  Sender: FDA-Public Use
  Company Number: US-ASTELLAS-2015US021001

PATIENT
  Age: 66 Year
  Sex: Male

DRUGS (2)
  1. XTANDI [Suspect]
     Active Substance: ENZALUTAMIDE
     Route: 048
     Dates: start: 20160416
  2. XTANDI [Suspect]
     Active Substance: ENZALUTAMIDE
     Indication: PROSTATE CANCER
     Route: 048
     Dates: start: 20150424, end: 20160415

REACTIONS (8)
  - Dysgeusia [Unknown]
  - Fatigue [Not Recovered/Not Resolved]
  - Balance disorder [Unknown]
  - Constipation [Unknown]
  - Upper limb fracture [Unknown]
  - Memory impairment [Not Recovered/Not Resolved]
  - Lethargy [Unknown]
  - Dizziness [Recovering/Resolving]

NARRATIVE: CASE EVENT DATE: 20150501
